FAERS Safety Report 24080743 (Version 4)
Quarter: 2024Q3

REPORT INFORMATION
  Report Type: Spontaneous
  Country: US (occurrence: US)
  Receive Date: 20240711
  Receipt Date: 20240828
  Transmission Date: 20241017
  Serious: Yes (Other)
  Sender: ORGANON
  Company Number: US-ORGANON-O2407USA000892

PATIENT
  Age: 27 Year
  Sex: Female
  Weight: 102.95 kg

DRUGS (2)
  1. NEXPLANON [Suspect]
     Active Substance: ETONOGESTREL
     Indication: Contraception
     Dosage: 1 IMPLANT (68 MILLIGRAM) (LEFT UPPER ARM)
     Route: 023
     Dates: start: 20240701, end: 20240703
  2. NEXPLANON [Suspect]
     Active Substance: ETONOGESTREL
     Dosage: 1 IMPLANT, IN RIGHT ARM (DOMINANT ARM)
     Route: 059
     Dates: start: 20210701, end: 20240701

REACTIONS (6)
  - Device expulsion [Recovered/Resolved]
  - Complication of device insertion [Recovered/Resolved]
  - Infection [Unknown]
  - Device placement issue [Recovered/Resolved]
  - Wrong technique in device usage process [Unknown]
  - Product quality issue [Unknown]

NARRATIVE: CASE EVENT DATE: 20210701
